FAERS Safety Report 8579108 (Version 2)
Quarter: 2013Q1

REPORT INFORMATION
  Report Type: Report from Study
  Country: CH (occurrence: CH)
  Receive Date: 20120524
  Receipt Date: 20130215
  Transmission Date: 20140127
  Serious: Yes (Hospitalization)
  Sender: FDA-Public Use
  Company Number: CH-ROCHE-1070450

PATIENT
  Age: 22 Year
  Sex: Female
  Weight: 73 kg

DRUGS (5)
  1. OMALIZUMAB [Suspect]
     Indication: ASTHMA
     Route: 058
     Dates: start: 20111122
  2. OMALIZUMAB [Suspect]
     Route: 058
     Dates: start: 201301
  3. FORMOTEROL FUMARATE [Concomitant]
  4. MONTELUKAST [Concomitant]
  5. SALBUTAMOL [Concomitant]

REACTIONS (4)
  - Asthma [Recovering/Resolving]
  - Dyspnoea [Recovering/Resolving]
  - Cough [Recovering/Resolving]
  - Forced expiratory volume abnormal [Not Recovered/Not Resolved]
